FAERS Safety Report 4740426-X (Version None)
Quarter: 2005Q3

REPORT INFORMATION
  Report Type: 
  Country: None (occurrence: None)
  Receive Date: 20050810
  Receipt Date: 20050802
  Transmission Date: 20060218
  Serious: Yes (Other)
  Sender: FDA-Public Use
  Company Number: US-BRISTOL-MYERS SQUIBB COMPANY-13059928

PATIENT
  Age: 5 Year
  Sex: Male
  Weight: 31 kg

DRUGS (2)
  1. PARAPLATIN [Suspect]
     Indication: PRIMITIVE NEUROECTODERMAL TUMOUR
     Route: 042
     Dates: start: 20050801, end: 20050801
  2. ZOFRAN [Concomitant]
     Indication: PREMEDICATION

REACTIONS (1)
  - CONVULSION [None]
